FAERS Safety Report 4470989-3 (Version None)
Quarter: 2004Q4

REPORT INFORMATION
  Report Type: 
  Country: None (occurrence: None)
  Receive Date: 20041011
  Receipt Date: 20040922
  Transmission Date: 20050328
  Serious: Yes (Death)
  Sender: FDA-Public Use
  Company Number: ES-BRISTOL-MYERS SQUIBB COMPANY-12710851

PATIENT
  Sex: Male

DRUGS (3)
  1. TAXOL [Suspect]
     Indication: TONGUE NEOPLASM MALIGNANT STAGE UNSPECIFIED
     Route: 042
  2. PLATINUM [Suspect]
  3. FLUOROURACIL [Suspect]

REACTIONS (1)
  - HEPATIC FAILURE [None]
